FAERS Safety Report 5708911-1 (Version None)
Quarter: 2008Q2

REPORT INFORMATION
  Report Type: 
  Country: None (occurrence: None)
  Receive Date: 20080416
  Receipt Date: 20080403
  Transmission Date: 20081010
  Serious: Yes (Life-Threatening, Other)
  Sender: FDA-Public Use
  Company Number: MC200800148

PATIENT
  Age: 84 Year
  Sex: Female
  Weight: 55.8 kg

DRUGS (17)
  1. ANGIOMAX [Suspect]
     Indication: ACUTE MYOCARDIAL INFARCTION
     Dosage: 0.75 MG/KG, SINGLE, IV BOLUS; 1.75 MG/KG, HR, INTRAVENOUS
     Route: 040
     Dates: start: 20080323, end: 20080323
  2. ANGIOMAX [Suspect]
     Indication: PERCUTANEOUS CORONARY INTERVENTION
     Dosage: 0.75 MG/KG, SINGLE, IV BOLUS; 1.75 MG/KG, HR, INTRAVENOUS
     Route: 040
     Dates: start: 20080323, end: 20080323
  3. ANGIOMAX [Suspect]
     Indication: ACUTE MYOCARDIAL INFARCTION
     Dosage: 0.75 MG/KG, SINGLE, IV BOLUS; 1.75 MG/KG, HR, INTRAVENOUS
     Route: 040
     Dates: start: 20080323, end: 20080323
  4. ANGIOMAX [Suspect]
     Indication: PERCUTANEOUS CORONARY INTERVENTION
     Dosage: 0.75 MG/KG, SINGLE, IV BOLUS; 1.75 MG/KG, HR, INTRAVENOUS
     Route: 040
     Dates: start: 20080323, end: 20080323
  5. LISINOPRIL [Concomitant]
  6. ASPIRIN [Concomitant]
  7. CALCIUM (CALCIUM) [Concomitant]
  8. HYDROCHLOROTHIAZIDE [Concomitant]
  9. ACETAMINOPHEN [Concomitant]
  10. LORAZEPAM [Concomitant]
  11. DIPHENHYDRAMINE HCL [Concomitant]
  12. LABETALOL HCL [Concomitant]
  13. PANTOPRAZOLE SODIUM [Concomitant]
  14. HYDROCHLORAZINE [Concomitant]
  15. TRAMADOL HCL [Concomitant]
  16. CLONIDINE [Concomitant]
  17. DIGOXIN [Concomitant]

REACTIONS (7)
  - ACTIVATED PARTIAL THROMBOPLASTIN TIME PROLONGED [None]
  - ANAEMIA [None]
  - HAEMATOMA [None]
  - OPERATIVE HAEMORRHAGE [None]
  - OVERDOSE [None]
  - PROCEDURAL COMPLICATION [None]
  - VASCULAR PSEUDOANEURYSM [None]
